FAERS Safety Report 21421987 (Version 2)
Quarter: 2022Q4

REPORT INFORMATION
  Report Type: Other
  Country: JP (occurrence: JP)
  Receive Date: 20221007
  Receipt Date: 20221221
  Transmission Date: 20230113
  Serious: Yes (Death)
  Sender: FDA-Public Use
  Company Number: JP-CHUGAI-2022038729

PATIENT
  Age: 70 Year
  Sex: Male

DRUGS (4)
  1. ATEZOLIZUMAB [Suspect]
     Active Substance: ATEZOLIZUMAB
     Indication: Small cell lung cancer extensive stage
     Dosage: FIXED DOSE OF INTRAVENOUS INJECTION ATEZOLIZUMAB ON DAY 1 OF EACH CYCLE
     Route: 042
  2. ATEZOLIZUMAB [Suspect]
     Active Substance: ATEZOLIZUMAB
     Dosage: MAINTENANCE THERAPY
     Route: 042
  3. CARBOPLATIN [Suspect]
     Active Substance: CARBOPLATIN
     Indication: Small cell lung cancer extensive stage
     Dosage: AREA UNDER THE CURVE OF 4-5 MIN MG/ML, INTRAVENOUS INJECTION ON DAY 1 OF EACH CYCLE
     Route: 041
  4. ETOPOSIDE [Suspect]
     Active Substance: ETOPOSIDE
     Indication: Small cell lung cancer extensive stage
     Dosage: 80-100 MG/M2 BODY SURFACE AREA, INTRAVENOUS INJECTION ON DAYS 1 THROUGH 3 OF EACH CYCLE
     Route: 041

REACTIONS (2)
  - Pneumonia bacterial [Fatal]
  - Lung abscess [Fatal]

NARRATIVE: CASE EVENT DATE: 20200319
